FAERS Safety Report 16929748 (Version 1)
Quarter: 2019Q4

REPORT INFORMATION
  Report Type: Spontaneous
  Country: US (occurrence: US)
  Receive Date: 20191017
  Receipt Date: 20191017
  Transmission Date: 20200122
  Serious: Yes (Disabling, Other)
  Sender: FDA-Public Use
  Company Number: None

PATIENT
  Age: 45 Year
  Sex: Female
  Weight: 72 kg

DRUGS (13)
  1. CARTIA [Concomitant]
  2. CLONAZEPAM. [Concomitant]
     Active Substance: CLONAZEPAM
  3. PROAIR INHALER [Concomitant]
     Active Substance: ALBUTEROL SULFATE
  4. VENLAFAXINE [Concomitant]
     Active Substance: VENLAFAXINE HYDROCHLORIDE
  5. CLONAZAPAM ORAL DISENTEGRATING TABLET USP .05 [Suspect]
     Active Substance: CLONAZEPAM
     Indication: ANXIETY
     Dosage: ?          QUANTITY:1 TABLET(S);?
     Route: 048
  6. DICLOMINE [Concomitant]
  7. CLONAZAPAM ORAL DISENTEGRATING TABLET USP .05 [Suspect]
     Active Substance: CLONAZEPAM
     Indication: POST-TRAUMATIC STRESS DISORDER
     Dosage: ?          QUANTITY:1 TABLET(S);?
     Route: 048
  8. IRTAZEPAM [Concomitant]
  9. TOPAMAX [Concomitant]
     Active Substance: TOPIRAMATE
  10. LIZZNESS [Concomitant]
  11. PANTOPRAZOLE [Concomitant]
     Active Substance: PANTOPRAZOLE
  12. RANITIDINE. [Concomitant]
     Active Substance: RANITIDINE
  13. FLECAINIDE [Concomitant]
     Active Substance: FLECAINIDE

REACTIONS (9)
  - Anxiety [None]
  - Ulcer [None]
  - Gastric disorder [None]
  - Treatment failure [None]
  - Panic attack [None]
  - Suspected product quality issue [None]
  - Palpitations [None]
  - Post-traumatic stress disorder [None]
  - Social anxiety disorder [None]

NARRATIVE: CASE EVENT DATE: 20180101
